FAERS Safety Report 12299121 (Version 1)
Quarter: 2016Q2

REPORT INFORMATION
  Report Type: Spontaneous
  Country: US (occurrence: None)
  Receive Date: 20160422
  Receipt Date: 20160422
  Transmission Date: 20160815
  Serious: No
  Sender: FDA-Public Use
  Company Number: None

PATIENT
  Age: 49 Year
  Sex: Female
  Weight: 58.06 kg

DRUGS (5)
  1. VITAMIN D [Concomitant]
     Active Substance: CHOLECALCIFEROL
  2. ENALAPRIL [Concomitant]
     Active Substance: ENALAPRIL
  3. IMIPRAMINE [Concomitant]
     Active Substance: IMIPRAMINE
  4. METHIMAZOLE 10MG, 10 MG [Suspect]
     Active Substance: METHIMAZOLE
     Indication: BASEDOW^S DISEASE
     Dosage: 90 TABLET(S) THREE TIMES A DAY TAKEN BY MOUTH
     Route: 048
     Dates: start: 20160310, end: 20160415
  5. KARIVA [Concomitant]
     Active Substance: DESOGESTREL\ETHINYL ESTRADIOL

REACTIONS (12)
  - No therapeutic response [None]
  - Arthralgia [None]
  - Tendon pain [None]
  - Scratch [None]
  - Pain in extremity [None]
  - Incorrect dose administered [None]
  - Pruritus [None]
  - Myalgia [None]
  - Ligament pain [None]
  - Urticaria [None]
  - Musculoskeletal pain [None]
  - Neuralgia [None]

NARRATIVE: CASE EVENT DATE: 20160414
